FAERS Safety Report 7316334-7 (Version None)
Quarter: 2011Q1

REPORT INFORMATION
  Report Type: 
  Country: None (occurrence: None)
  Receive Date: 20110225
  Receipt Date: 20110222
  Transmission Date: 20110831
  Serious: Yes (Death, Hospitalization)
  Sender: FDA-Public Use
  Company Number: US-US-EMD SERONO, INC.-7043397

PATIENT
  Sex: Male

DRUGS (1)
  1. REBIF [Suspect]
     Indication: PRODUCT USED FOR UNKNOWN INDICATION
     Route: 058
     Dates: start: 20070507, end: 20090101

REACTIONS (6)
  - PROGRESSIVE MULTIPLE SCLEROSIS [None]
  - FALL [None]
  - PERITONEAL INFECTION [None]
  - FEEDING TUBE COMPLICATION [None]
  - HEAD INJURY [None]
  - UNRESPONSIVE TO STIMULI [None]
